FAERS Safety Report 18366744 (Version 2)
Quarter: 2020Q4

REPORT INFORMATION
  Report Type: Report from Study
  Country: MX (occurrence: MX)
  Receive Date: 20201009
  Receipt Date: 20201015
  Transmission Date: 20210114
  Serious: Yes (Death, Hospitalization)
  Sender: FDA-Public Use
  Company Number: NVSC2020MX272902

PATIENT
  Age: 72 Year
  Sex: Female
  Weight: 73 kg

DRUGS (1)
  1. ENTRESTO [Suspect]
     Active Substance: SACUBITRIL\VALSARTAN
     Indication: CARDIAC DISORDER
     Dosage: 50 MG, BID (2DF, 1 IN THE MORNING AND 1 IN THE NIGHT)
     Route: 048

REACTIONS (5)
  - Cough [Fatal]
  - Product use in unapproved indication [Unknown]
  - Pneumonia [Fatal]
  - Dyspnoea [Fatal]
  - Chest pain [Fatal]

NARRATIVE: CASE EVENT DATE: 201912
